FAERS Safety Report 6152078-5 (Version None)
Quarter: 2009Q2

REPORT INFORMATION
  Report Type: 
  Country: None (occurrence: None)
  Receive Date: 20090408
  Receipt Date: 20090326
  Transmission Date: 20091009
  Serious: Yes (Death)
  Sender: FDA-Public Use
  Company Number: 2009AL001887

PATIENT
  Age: 89 Year
  Sex: Male

DRUGS (13)
  1. NAPROXEN [Suspect]
     Indication: ANALGESIA
     Dosage: 500 MG; BID; PO
     Route: 048
     Dates: end: 20080601
  2. ACLASTA [Concomitant]
  3. ORAMORPH SR [Concomitant]
  4. LANSOPRAZOLE [Concomitant]
  5. FUNGILIN [Concomitant]
  6. BUTRANS [Concomitant]
  7. METOCLOPRAMIDE [Concomitant]
  8. LATANOPROST [Concomitant]
  9. ADCAL-D3 [Concomitant]
  10. CLARITHROMYCIN [Concomitant]
  11. CALFOVIT D3 [Concomitant]
  12. CALCIUM GLUCONATE [Concomitant]
  13. NYSTATIN [Concomitant]

REACTIONS (8)
  - BLOOD CALCIUM DECREASED [None]
  - DEHYDRATION [None]
  - GENERAL PHYSICAL HEALTH DETERIORATION [None]
  - HEART RATE INCREASED [None]
  - LOWER RESPIRATORY TRACT INFECTION [None]
  - PAIN [None]
  - PNEUMONIA [None]
  - RENAL FAILURE ACUTE [None]
